FAERS Safety Report 5795614-0 (Version None)
Quarter: 2008Q2

REPORT INFORMATION
  Report Type: 
  Country: None (occurrence: None)
  Receive Date: 20080630
  Receipt Date: 20080619
  Transmission Date: 20081010
  Serious: Yes (Hospitalization, Other)
  Sender: FDA-Public Use
  Company Number: US-PFIZER INC-2008052436

PATIENT
  Sex: Female
  Weight: 59.5 kg

DRUGS (6)
  1. CHANTIX [Suspect]
     Indication: SMOKING CESSATION THERAPY
     Dosage: TEXT:0.5 MG BID EVERY DAY TDD:1 MG
     Route: 048
  2. ANTIBIOTICS [Suspect]
     Indication: INFECTION PROPHYLAXIS
  3. EFFEXOR XR [Concomitant]
  4. PROTONIX [Concomitant]
  5. CYTOMEL [Concomitant]
     Dosage: DAILY DOSE:25MG
  6. KLONOPIN [Concomitant]

REACTIONS (6)
  - ABNORMAL DREAMS [None]
  - DENTAL PROSTHESIS PLACEMENT [None]
  - GASTRIC DISORDER [None]
  - LUNG NEOPLASM [None]
  - NIGHTMARE [None]
  - TOOTH EXTRACTION [None]
